FAERS Safety Report 8471019-9 (Version None)
Quarter: 2012Q2

REPORT INFORMATION
  Report Type: 
  Country: None (occurrence: None)
  Receive Date: 20120323
  Receipt Date: 20111104
  Transmission Date: 20120825
  Serious: Yes (Hospitalization, Other)
  Sender: FDA-Public Use
  Company Number: 163-21880-11110702

PATIENT
  Age: 82 Year
  Sex: Female

DRUGS (9)
  1. ZOFRAN [Concomitant]
  2. ADVAIR HFA [Concomitant]
  3. AMLODIPINE [Concomitant]
  4. ASPIRIN [Concomitant]
  5. REVLIMID [Suspect]
     Indication: MULTIPLE MYELOMA
     Dosage: 25 MG, QD DAYS 1-21, PO
     Route: 048
     Dates: start: 20111010, end: 20111026
  6. MORPHINE [Concomitant]
  7. NEURONTIN [Concomitant]
  8. ACETAMINOPHEN [Concomitant]
  9. LASIX [Concomitant]

REACTIONS (4)
  - RASH [None]
  - DRY SKIN [None]
  - CONFUSIONAL STATE [None]
  - RENAL FAILURE ACUTE [None]
